FAERS Safety Report 17669608 (Version 3)
Quarter: 2020Q3

REPORT INFORMATION
  Report Type: Spontaneous
  Country: US (occurrence: US)
  Receive Date: 20200415
  Receipt Date: 20200923
  Transmission Date: 20201102
  Serious: Yes (Other)
  Sender: FDA-Public Use
  Company Number: US-GILEAD-2020-0458809

PATIENT
  Sex: Male

DRUGS (2)
  1. COMPLERA [Suspect]
     Active Substance: EMTRICITABINE\RILPIVIRINE HYDROCHLORIDE\TENOFOVIR DISOPROXIL FUMARATE
     Indication: HIV INFECTION
     Dosage: UNK
     Route: 048
     Dates: start: 2012, end: 201905
  2. ODEFSEY [Concomitant]
     Active Substance: EMTRICITABINE\RILPIVIRINE HYDROCHLORIDE\TENOFOVIR ALAFENAMIDE FUMARATE

REACTIONS (5)
  - Osteoporosis [Not Recovered/Not Resolved]
  - Emotional distress [Unknown]
  - Bone density decreased [Unknown]
  - Economic problem [Unknown]
  - Pain [Unknown]

NARRATIVE: CASE EVENT DATE: 2013
